FAERS Safety Report 7302477-0 (Version None)
Quarter: 2011Q1

REPORT INFORMATION
  Report Type: 
  Country: None (occurrence: None)
  Receive Date: 20110218
  Receipt Date: 20110215
  Transmission Date: 20110831
  Serious: No
  Sender: FDA-Public Use
  Company Number: US-PFIZER INC-2011034248

PATIENT
  Sex: Male
  Weight: 86.168 kg

DRUGS (1)
  1. CHANTIX [Suspect]
     Indication: SMOKING CESSATION THERAPY
     Dosage: 0.5 MG, DAILY
     Route: 048
     Dates: start: 20110128, end: 20110203

REACTIONS (5)
  - OROPHARYNGEAL PAIN [None]
  - SWELLING [None]
  - INFLUENZA [None]
  - IRRITABILITY [None]
  - BODY TEMPERATURE INCREASED [None]
